FAERS Safety Report 21309858 (Version 1)
Quarter: 2022Q3

REPORT INFORMATION
  Report Type: Spontaneous
  Country: US (occurrence: None)
  Receive Date: 20220908
  Receipt Date: 20220908
  Transmission Date: 20221027
  Serious: Yes (Death)
  Sender: FDA-Public Use
  Company Number: None

PATIENT
  Sex: Female

DRUGS (8)
  1. GLATIRAMER [Suspect]
     Active Substance: GLATIRAMER
     Indication: Multiple sclerosis
     Route: 058
     Dates: start: 20210316
  2. BETAMETH DIP CRE [Concomitant]
  3. CHLORHEX GLU SOL [Concomitant]
  4. CLOTRIM/BETA CRE [Concomitant]
  5. FLUCONAZOLE TAB [Concomitant]
  6. NAPROXDEN TAB [Concomitant]
  7. NYSTATIN [Concomitant]
     Active Substance: NYSTATIN
  8. TRIAMCINOLON CRE [Concomitant]

REACTIONS (1)
  - Death [None]
